FAERS Safety Report 7730926-2 (Version None)
Quarter: 2011Q3

REPORT INFORMATION
  Report Type: 
  Country: None (occurrence: None)
  Receive Date: 20110906
  Receipt Date: 20110823
  Transmission Date: 20111222
  Serious: Yes (Other)
  Sender: FDA-Public Use
  Company Number: US-BAYER-2011-076485

PATIENT
  Age: 77 Year
  Sex: Female

DRUGS (4)
  1. CLOPIDOGREL [Suspect]
     Indication: ANTICOAGULANT THERAPY
  2. CLOPIDOGREL [Suspect]
     Indication: CORONARY ARTERIAL STENT INSERTION
     Dosage: 75 MG, UNK
     Route: 048
  3. ACETYLSALICYLIC ACID SRT [Suspect]
     Indication: CORONARY ARTERIAL STENT INSERTION
     Dosage: 325 MG, UNK
     Route: 048
  4. ACETYLSALICYLIC ACID SRT [Suspect]
     Indication: ANTICOAGULANT THERAPY

REACTIONS (2)
  - INCISION SITE HAEMORRHAGE [None]
  - SKIN FLAP NECROSIS [None]
